FAERS Safety Report 15724887 (Version 5)
Quarter: 2019Q2

REPORT INFORMATION
  Report Type: Report from Study
  Country: None (occurrence: AU)
  Receive Date: 20181214
  Receipt Date: 20190531
  Transmission Date: 20190711
  Serious: Yes (Death, Other)
  Sender: FDA-Public Use
  Company Number: AU-ABBVIE-18P-008-2589678-00

PATIENT
  Age: 82 Year
  Sex: Male
  Weight: 62 kg

DRUGS (17)
  1. CHOLECALCIFEROL [Concomitant]
     Active Substance: CHOLECALCIFEROL
     Indication: VITAMIN SUPPLEMENTATION
     Route: 048
     Dates: start: 201606
  2. METOPROLOL. [Concomitant]
     Active Substance: METOPROLOL
     Indication: ATRIAL FIBRILLATION
     Route: 048
     Dates: start: 2016
  3. PANTOPRAZOLE [Concomitant]
     Active Substance: PANTOPRAZOLE
     Indication: GASTROOESOPHAGEAL REFLUX DISEASE
     Route: 048
     Dates: start: 2016
  4. MIRTAZAPINE. [Concomitant]
     Active Substance: MIRTAZAPINE
     Indication: DEPRESSION
     Dosage: NOCTE
     Route: 048
     Dates: start: 2016
  5. COLOXYL SENNA [Concomitant]
     Indication: CONSTIPATION
     Dosage: NOCTE
     Route: 048
  6. DABVAGATRAN [Concomitant]
     Indication: CEREBROVASCULAR ACCIDENT PROPHYLAXIS
  7. TAMSULOSIN [Concomitant]
     Active Substance: TAMSULOSIN
     Indication: BENIGN PROSTATIC HYPERPLASIA
     Dosage: NOCTE
     Route: 048
     Dates: start: 20180315
  8. DABVAGATRAN [Concomitant]
     Indication: ATRIAL FIBRILLATION
     Route: 048
     Dates: start: 20170810
  9. SINEMET [Concomitant]
     Active Substance: CARBIDOPA\LEVODOPA
     Route: 048
     Dates: start: 20170517, end: 20170605
  10. DABVAGATRAN [Concomitant]
     Indication: ISCHAEMIC HEART DISEASE PROPHYLAXIS
  11. SINEMET [Concomitant]
     Active Substance: CARBIDOPA\LEVODOPA
     Indication: PARKINSON^S DISEASE
     Dosage: 400/100 MG AT NOCTE
     Route: 048
     Dates: start: 20141124
  12. DUODOPA [Suspect]
     Active Substance: CARBIDOPA\LEVODOPA
     Indication: PARKINSON^S DISEASE
     Dosage: TITRATION: DOSING AT END OF TITRATION: MD: 10.5 ML, CD: 6.5 ML/H, ED: 0.5 ML, 1X/D, 16 H
     Route: 050
     Dates: start: 20170608, end: 20170614
  13. PANADOL [Concomitant]
     Active Substance: ACETAMINOPHEN
     Indication: ARTHRALGIA
  14. QUETIAPINE. [Concomitant]
     Active Substance: QUETIAPINE
     Indication: HALLUCINATION
     Dosage: NOCTE
     Route: 048
     Dates: start: 20140718, end: 20170609
  15. DUODOPA [Suspect]
     Active Substance: CARBIDOPA\LEVODOPA
     Dosage: CD: 6.5 ML/H
     Route: 050
     Dates: start: 20170614
  16. PANADOL [Concomitant]
     Active Substance: ACETAMINOPHEN
     Indication: OSTEOARTHRITIS
     Route: 048
     Dates: start: 20160513
  17. QUETIAPINE. [Concomitant]
     Active Substance: QUETIAPINE
     Dosage: NOCTE
     Route: 048
     Dates: start: 20170610

REACTIONS (1)
  - B-cell lymphoma stage IV [Fatal]

NARRATIVE: CASE EVENT DATE: 20180705
